FAERS Safety Report 24428546 (Version 2)
Quarter: 2024Q4

REPORT INFORMATION
  Report Type: Spontaneous
  Country: US (occurrence: US)
  Receive Date: 20241011
  Receipt Date: 20241104
  Transmission Date: 20250115
  Serious: No
  Sender: BIOVITRUM
  Company Number: US-BIOVITRUM-2024-US-012441

PATIENT
  Age: 63 Year
  Sex: Female

DRUGS (3)
  1. DOPTELET [Suspect]
     Active Substance: AVATROMBOPAG MALEATE
     Indication: Immune thrombocytopenia
     Dosage: 2 TABLETS DAILY FOR 5 DAYS
     Route: 048
     Dates: start: 20240912, end: 20240916
  2. DOPTELET [Suspect]
     Active Substance: AVATROMBOPAG MALEATE
     Indication: Thrombocytopenia
     Dosage: FOR 5 DAYS DAILY
     Route: 048
  3. DOPTELET [Suspect]
     Active Substance: AVATROMBOPAG MALEATE
     Dosage: 2 TABS DAILY CONTINOUSLY
     Route: 048

REACTIONS (4)
  - Platelet count decreased [Unknown]
  - Full blood count decreased [Unknown]
  - Drug ineffective [Unknown]
  - Asthenia [Unknown]
